FAERS Safety Report 4320281-2 (Version None)
Quarter: 2004Q1

REPORT INFORMATION
  Report Type: 
  Country: None (occurrence: None)
  Receive Date: 20040317
  Receipt Date: 20040303
  Transmission Date: 20041129
  Serious: Yes (Hospitalization)
  Sender: FDA-Public Use
  Company Number: 2004014889

PATIENT
  Age: 82 Year
  Sex: Female

DRUGS (11)
  1. ACCUPRIL [Suspect]
     Indication: HYPERTENSION
     Dosage: 20 MG (BID), ORAL
     Route: 048
     Dates: end: 20031108
  2. PIERTANDE (PIRETANIDE) [Suspect]
     Indication: HYPERTENSION
     Dosage: 3 MG (DAILY), ORAL
     Route: 048
     Dates: end: 20031108
  3. METAMIZOLE SODIUM (METAMIZOLE SODIUM) [Suspect]
     Indication: ARTHRALGIA
     Dosage: 20 DROP (PRN), ORAL
     Route: 048
     Dates: start: 20031001, end: 20031108
  4. GLIMEPIRIDE (GLIMEPIRDIE) [Suspect]
     Indication: DIABETES MELLITUS NON-INSULIN-DEPENDENT
     Dosage: 2 MG (DAILY), ORAL
     Route: 048
     Dates: end: 20031108
  5. ROFECOXIB [Suspect]
     Indication: PAIN
     Dosage: 100 MG (BID), ORAL
     Route: 048
     Dates: start: 20030801, end: 20031108
  6. ACYCLOVIR [Concomitant]
  7. THIOCTIC ACID (THIOCTIC ACID) [Concomitant]
  8. HYDROXYZINE HCL [Concomitant]
  9. BISOPROLOL FUMARATE [Concomitant]
  10. TOLPERISONE (TOLPERISONE) [Concomitant]
  11. PROCAINE (PROCAINE) [Concomitant]

REACTIONS (8)
  - ABDOMINAL PAIN UPPER [None]
  - DRUG INTERACTION [None]
  - ELECTROLYTE IMBALANCE [None]
  - HYPERTENSION [None]
  - HYPONATRAEMIA [None]
  - OEDEMA PERIPHERAL [None]
  - OESOPHAGEAL CANDIDIASIS [None]
  - VOMITING [None]
